FAERS Safety Report 10412245 (Version 2)
Quarter: 2014Q4

REPORT INFORMATION
  Report Type: Spontaneous
  Country: US (occurrence: None)
  Receive Date: 20140604
  Receipt Date: 20141010
  Transmission Date: 20150528
  Serious: Yes (Other)
  Sender: FDA-Public Use
  Company Number: 163-POMAL-14030633

PATIENT
  Age: 56 Year
  Sex: Female

DRUGS (5)
  1. ASPIR-81 (ACETYLSALICYLIC ACID) [Concomitant]
  2. LACTULOSE. [Concomitant]
     Active Substance: LACTULOSE
  3. ZOMETA [Concomitant]
     Active Substance: ZOLEDRONIC ACID
  4. POMALYST [Suspect]
     Active Substance: POMALIDOMIDE
     Indication: PLASMA CELL MYELOMA
     Dosage: 21 IN 21 D
     Route: 048
     Dates: start: 201309, end: 20140331
  5. ZUTRIPRO (PROMIST HD) [Concomitant]

REACTIONS (1)
  - Pneumonitis [None]
